FAERS Safety Report 17475384 (Version 1)
Quarter: 2020Q1

REPORT INFORMATION
  Report Type: Report from Study
  Country: GB (occurrence: GB)
  Receive Date: 20200228
  Receipt Date: 20200228
  Transmission Date: 20200409
  Serious: Yes (Hospitalization)
  Sender: FDA-Public Use
  Company Number: GB-JNJFOC-20190806658

PATIENT

DRUGS (8)
  1. BUDESONIDE. [Concomitant]
     Active Substance: BUDESONIDE
     Indication: ASTHMA
     Dosage: 1MG/2ML  VIA NEBULISER
     Route: 045
  2. HYOSCINE HYDROBROMIDE [Concomitant]
     Active Substance: SCOPOLAMINE HYDROBROMIDE
     Route: 065
  3. CARBAMAZEPINE. [Concomitant]
     Active Substance: CARBAMAZEPINE
     Indication: EPILEPSY
     Dosage: PERCUTANEOUS ENDOSCOPIC GASTROSTOMY (PEG) ROUTE
     Route: 065
  4. LACOSAMIDE. [Suspect]
     Active Substance: LACOSAMIDE
     Indication: EPILEPSY
     Route: 065
  5. SALBUTAMOL [Concomitant]
     Active Substance: ALBUTEROL
     Indication: ASTHMA
     Dosage: 5MG/2.5ML  INHALER
  6. USTEKINUMAB [Suspect]
     Active Substance: USTEKINUMAB
     Indication: CROHN^S DISEASE
     Route: 058
     Dates: start: 20170919, end: 20190216
  7. THIAMINE. [Concomitant]
     Active Substance: THIAMINE
     Dosage: PERCUTANEOUS ENDOSCOPIC GASTROSTOMY (PEG) ROUTE
     Route: 065
  8. GABAPENTIN. [Concomitant]
     Active Substance: GABAPENTIN
     Indication: EPILEPSY
     Dosage: PERCUTANEOUS ENDOSCOPIC GASTROSTOMY (PEG) ROUTE
     Route: 065

REACTIONS (2)
  - Pyrexia [Unknown]
  - Seizure [Unknown]
